FAERS Safety Report 6038399-5 (Version None)
Quarter: 2009Q1

REPORT INFORMATION
  Report Type: 
  Country: None (occurrence: None)
  Receive Date: 20090115
  Receipt Date: 20081215
  Transmission Date: 20090719
  Serious: No
  Sender: FDA-Public Use
  Company Number: US-BAYER-200814934BCC

PATIENT
  Age: 2 Year
  Sex: Male

DRUGS (2)
  1. ALEVE [Suspect]
     Dosage: UNIT DOSE: 220 MG
  2. DAILY VITAMINS [Concomitant]

REACTIONS (1)
  - NO ADVERSE EVENT [None]
